FAERS Safety Report 8916207 (Version 1)
Quarter: 2012Q4

REPORT INFORMATION
  Report Type: 
  Country: AU (occurrence: AU)
  Receive Date: 20121120
  Receipt Date: 20121120
  Transmission Date: 20130627
  Serious: Yes (Other)
  Sender: FDA-Public Use
  Company Number: AU-GLAXOSMITHKLINE-B0842781A

PATIENT
  Age: 69 None
  Sex: Female

DRUGS (5)
  1. AROPAX [Suspect]
     Indication: PRODUCT USED FOR UNKNOWN INDICATION
     Route: 065
  2. SIMVASTATIN [Concomitant]
     Route: 065
  3. FISH OIL [Concomitant]
     Route: 065
  4. GLUCOSAMINE [Concomitant]
     Route: 065
  5. THYROXINE [Concomitant]
     Route: 065

REACTIONS (6)
  - Pancreatic enzymes increased [Unknown]
  - Chest pain [Unknown]
  - Abdominal pain [Unknown]
  - Nausea [Unknown]
  - Vomiting [Unknown]
  - Pancreatitis [Unknown]
